FAERS Safety Report 23312344 (Version 1)
Quarter: 2023Q4

REPORT INFORMATION
  Report Type: Spontaneous
  Country: FR (occurrence: FR)
  Receive Date: 20231219
  Receipt Date: 20231219
  Transmission Date: 20240110
  Serious: Yes (Life-Threatening, Other)
  Sender: FDA-Public Use
  Company Number: FR-AFSSAPS-NC2023001481

PATIENT
  Age: 52 Year
  Sex: Female
  Weight: 102 kg

DRUGS (6)
  1. AMLODIPINE [Suspect]
     Active Substance: AMLODIPINE BESYLATE
     Indication: Product used for unknown indication
     Dosage: SEE COMMENTS
     Route: 048
     Dates: start: 20231115, end: 20231115
  2. VALSARTAN [Suspect]
     Active Substance: VALSARTAN
     Indication: Product used for unknown indication
     Dosage: SEE COMMENTS
     Route: 048
     Dates: start: 20231115, end: 20231115
  3. VENLAFAXINE [Suspect]
     Active Substance: VENLAFAXINE HYDROCHLORIDE
     Indication: Product used for unknown indication
     Dosage: 42 DOSAGE FORM, 1 TOTAL
     Route: 048
     Dates: start: 20231115, end: 20231115
  4. DAFALGAN [Suspect]
     Active Substance: ACETAMINOPHEN
     Indication: Product used for unknown indication
     Dosage: 8 DOSAGE FORM, 1 TOTAL
     Route: 048
     Dates: start: 20231115, end: 20231115
  5. OXAZEPAM [Suspect]
     Active Substance: OXAZEPAM
     Indication: Mixed anxiety and depressive disorder
     Dosage: 100 DOSAGE FORM, 1 TOTAL
     Route: 048
     Dates: start: 20231101, end: 20231114
  6. PHLOROGLUCINOL [Suspect]
     Active Substance: PHLOROGLUCINOL
     Indication: Product used for unknown indication
     Dosage: 10 DOSAGE FORM, 1 TOTAL
     Route: 048
     Dates: start: 20231115, end: 20231115

REACTIONS (4)
  - Generalised tonic-clonic seizure [Recovered/Resolved]
  - Hyponatraemia [Recovered/Resolved]
  - Hypotension [Recovered/Resolved]
  - Serotonin syndrome [Recovered/Resolved]

NARRATIVE: CASE EVENT DATE: 20231116
